FAERS Safety Report 12606809 (Version 2)
Quarter: 2016Q3

REPORT INFORMATION
  Report Type: Spontaneous
  Country: US (occurrence: US)
  Receive Date: 20160729
  Receipt Date: 20160822
  Transmission Date: 20161109
  Serious: Yes (Other)
  Sender: FDA-Public Use
  Company Number: US-DRREDDYS-USA/USA/16/0081880

PATIENT
  Age: 69 Year
  Sex: Female

DRUGS (1)
  1. IBANDRONATE SODIUM TABLETS 150 MG [Suspect]
     Active Substance: IBANDRONATE SODIUM
     Indication: OSTEOPOROSIS
     Route: 065
     Dates: start: 2008

REACTIONS (2)
  - Periprosthetic fracture [Recovered/Resolved]
  - Fracture delayed union [Recovered/Resolved]
